FAERS Safety Report 13897162 (Version 1)
Quarter: 2017Q3

REPORT INFORMATION
  Report Type: Spontaneous
  Country: FR (occurrence: FR)
  Receive Date: 20170823
  Receipt Date: 20170823
  Transmission Date: 20171127
  Serious: Yes (Hospitalization)
  Sender: FDA-Public Use
  Company Number: FR-PFIZER INC-2017355657

PATIENT
  Age: 82 Year
  Sex: Male

DRUGS (6)
  1. ZOXAN [Suspect]
     Active Substance: DOXAZOSIN MESYLATE
     Indication: URINARY INCONTINENCE
     Dosage: 1 DF, 1X/DAY
     Route: 048
     Dates: end: 20170624
  2. XARELTO [Suspect]
     Active Substance: RIVAROXABAN
     Indication: ATRIAL FIBRILLATION
     Dosage: 1 DF, 1X/DAY
     Route: 048
     Dates: end: 20170624
  3. ATEPADENE /00090102/ [Concomitant]
     Indication: MYALGIA
     Dosage: UNK
     Route: 048
     Dates: start: 20170614, end: 20170621
  4. ORGANIC SILICA [Concomitant]
     Indication: MYALGIA
     Dosage: UNK
     Route: 048
     Dates: start: 201706, end: 20170614
  5. SOTALOL /00371502/ [Suspect]
     Active Substance: SOTALOL HYDROCHLORIDE
     Dosage: 40 MG, 2X/DAY
     Route: 048
     Dates: end: 20170628
  6. LUMIRELAX /00047901/ [Concomitant]
     Indication: MYALGIA
     Dosage: UNK
     Route: 048
     Dates: start: 201706, end: 20170614

REACTIONS (4)
  - Hepatitis [Recovered/Resolved]
  - Coagulation factor V level decreased [Unknown]
  - Myalgia [Recovering/Resolving]
  - Prothrombin time shortened [Recovered/Resolved]

NARRATIVE: CASE EVENT DATE: 201706
